FAERS Safety Report 7354846-0 (Version None)
Quarter: 2011Q1

REPORT INFORMATION
  Report Type: 
  Country: None (occurrence: None)
  Receive Date: 20110307
  Receipt Date: 20101009
  Transmission Date: 20110831
  Serious: Yes (Life-Threatening, Hospitalization, Other)
  Sender: FDA-Public Use
  Company Number: 2010AP002174

PATIENT
  Age: 37 Year
  Sex: Female

DRUGS (3)
  1. DIAZEPAM [Concomitant]
  2. IBUPROFEN [Concomitant]
  3. TOPIRAMATE [Suspect]
     Indication: BIPOLAR DISORDER
     Dosage: 100 MG; BID; PO
     Route: 048

REACTIONS (18)
  - MYOCLONUS [None]
  - INTENTIONAL OVERDOSE [None]
  - BLOOD PRESSURE DIASTOLIC DECREASED [None]
  - COMA [None]
  - ATAXIA [None]
  - SUICIDE ATTEMPT [None]
  - MUSCLE TWITCHING [None]
  - BLOOD CHLORIDE INCREASED [None]
  - SOMNOLENCE [None]
  - UNRESPONSIVE TO STIMULI [None]
  - DRUG LEVEL ABOVE THERAPEUTIC [None]
  - EXCORIATION [None]
  - TREATMENT NONCOMPLIANCE [None]
  - METABOLIC ACIDOSIS [None]
  - NYSTAGMUS [None]
  - DYSARTHRIA [None]
  - TOXICITY TO VARIOUS AGENTS [None]
  - BLOOD POTASSIUM DECREASED [None]
